FAERS Safety Report 15677412 (Version 2)
Quarter: 2018Q4

REPORT INFORMATION
  Report Type: Report from Study
  Country: CO (occurrence: CO)
  Receive Date: 20181130
  Receipt Date: 20181217
  Transmission Date: 20190205
  Serious: Yes (Hospitalization)
  Sender: FDA-Public Use
  Company Number: CO-JNJFOC-20181132811

PATIENT
  Age: 53 Year
  Sex: Male
  Weight: 62 kg

DRUGS (3)
  1. DARZALEX [Suspect]
     Active Substance: DARATUMUMAB
     Indication: PLASMA CELL MYELOMA
     Route: 042
     Dates: start: 20170920, end: 20171227
  2. DARZALEX [Suspect]
     Active Substance: DARATUMUMAB
     Indication: PLASMA CELL MYELOMA
     Route: 042
     Dates: start: 20180124
  3. DARZALEX [Suspect]
     Active Substance: DARATUMUMAB
     Indication: PLASMA CELL MYELOMA
     Route: 042
     Dates: start: 20170726, end: 20170915

REACTIONS (6)
  - Bacterial infection [Recovering/Resolving]
  - Product packaging issue [Unknown]
  - Cardiac failure [Recovering/Resolving]
  - Bacteraemia [Recovering/Resolving]
  - Pneumonia [Recovering/Resolving]
  - Oedema [Recovering/Resolving]

NARRATIVE: CASE EVENT DATE: 201809
